FAERS Safety Report 5840100-2 (Version None)
Quarter: 2008Q3

REPORT INFORMATION
  Report Type: 
  Country: None (occurrence: None)
  Receive Date: 20080811
  Receipt Date: 20080804
  Transmission Date: 20090109
  Serious: Yes (Other)
  Sender: FDA-Public Use
  Company Number: B0531956A

PATIENT
  Age: 41 Year
  Sex: Male

DRUGS (1)
  1. IMIGRANE [Suspect]
     Indication: MIGRAINE
     Route: 045
     Dates: start: 20080101

REACTIONS (1)
  - DRUG ABUSE [None]
